FAERS Safety Report 6902656-8 (Version None)
Quarter: 2010Q3

REPORT INFORMATION
  Report Type: 
  Country: None (occurrence: None)
  Receive Date: 20100803
  Receipt Date: 20080721
  Transmission Date: 20110219
  Serious: No
  Sender: FDA-Public Use
  Company Number: US-PFIZER INC-2008048258

PATIENT
  Sex: Female
  Weight: 56.8 kg

DRUGS (3)
  1. LYRICA [Suspect]
     Indication: POST HERPETIC NEURALGIA
     Dates: start: 20080501
  2. LIBRIUM [Suspect]
  3. DRUG, UNSPECIFIED [Concomitant]

REACTIONS (8)
  - DRY MOUTH [None]
  - FUNGAL INFECTION [None]
  - GINGIVAL ERYTHEMA [None]
  - GINGIVAL PAIN [None]
  - NASOPHARYNGITIS [None]
  - ORAL PAIN [None]
  - STOMATITIS [None]
  - THERMAL BURN [None]
